FAERS Safety Report 11514259 (Version 1)
Quarter: 2015Q3

REPORT INFORMATION
  Report Type: Spontaneous
  Country: US (occurrence: US)
  Receive Date: 20150903
  Receipt Date: 20150903
  Transmission Date: 20151125
  Serious: No
  Sender: FDA-Public Use
  Company Number: US-ELI_LILLY_AND_COMPANY-US201301000068

PATIENT
  Age: 84 Year
  Sex: Female

DRUGS (5)
  1. CYMBALTA [Suspect]
     Active Substance: DULOXETINE HYDROCHLORIDE
     Indication: NEUROPATHY PERIPHERAL
     Dosage: 30 MG, QD
     Dates: start: 201208
  2. CENTRUM SILVER [Concomitant]
     Active Substance: VITAMINS
  3. NEURONTIN [Concomitant]
     Active Substance: GABAPENTIN
  4. CALTRATE PLUS-D [Concomitant]
  5. CYMBALTA [Suspect]
     Active Substance: DULOXETINE HYDROCHLORIDE
     Dosage: 60 MG, QD

REACTIONS (11)
  - Arthralgia [Unknown]
  - Fall [Unknown]
  - Drug withdrawal syndrome [Unknown]
  - Headache [Unknown]
  - Oropharyngeal pain [Unknown]
  - Asthenia [Unknown]
  - Disorientation [Unknown]
  - Feeling abnormal [Unknown]
  - Intentional product misuse [Unknown]
  - Memory impairment [Unknown]
  - Confusional state [Unknown]
